FAERS Safety Report 22082915 (Version 1)
Quarter: 2023Q1

REPORT INFORMATION
  Report Type: Spontaneous
  Country: US (occurrence: US)
  Receive Date: 20230310
  Receipt Date: 20230310
  Transmission Date: 20230418
  Serious: Yes (Other)
  Sender: FDA-Public Use
  Company Number: US-GLAXOSMITHKLINE-USCH2023AMR010092

PATIENT

DRUGS (12)
  1. ADVIL [Suspect]
     Active Substance: IBUPROFEN
     Indication: Joint swelling
     Dosage: 1 DF, TID
     Route: 048
     Dates: end: 202211
  2. ADVIL [Suspect]
     Active Substance: IBUPROFEN
     Indication: Osteoarthritis
  3. ADVIL [Suspect]
     Active Substance: IBUPROFEN
     Indication: Arthralgia
  4. HUMIRA [Suspect]
     Active Substance: ADALIMUMAB
     Indication: Psoriatic arthropathy
     Dosage: 40 MG, EVERY 2 WEEKS
     Route: 058
     Dates: start: 202110
  5. HUMIRA [Suspect]
     Active Substance: ADALIMUMAB
     Dosage: 40 MG
     Route: 058
     Dates: start: 202208
  6. BACLOFEN [Concomitant]
     Active Substance: BACLOFEN
     Indication: Myotonia
     Dosage: UNK
  7. PIROXICAM [Concomitant]
     Active Substance: PIROXICAM
     Indication: Myotonia
     Dosage: UNK
  8. BUPROPION [Concomitant]
     Active Substance: BUPROPION
     Indication: Product used for unknown indication
     Dosage: UNK
  9. CYMBALTA [Concomitant]
     Active Substance: DULOXETINE HYDROCHLORIDE
     Indication: Product used for unknown indication
     Dosage: UNK
  10. LEVOTHYROXINE SODIUM [Concomitant]
     Active Substance: LEVOTHYROXINE SODIUM
     Indication: Hypothyroidism
     Dosage: UNK
  11. MODAFINIL [Concomitant]
     Active Substance: MODAFINIL
     Indication: Product used for unknown indication
     Dosage: UNK
  12. VALIUM [Concomitant]
     Active Substance: DIAZEPAM
     Indication: Myotonia
     Dosage: UNK

REACTIONS (7)
  - Renal injury [Unknown]
  - Renal pain [Recovered/Resolved]
  - Arthralgia [Recovering/Resolving]
  - Joint swelling [Not Recovered/Not Resolved]
  - Swelling [Unknown]
  - Peripheral swelling [Unknown]
  - Heart rate increased [Unknown]

NARRATIVE: CASE EVENT DATE: 20221101
